FAERS Safety Report 11533431 (Version 2)
Quarter: 2015Q3

REPORT INFORMATION
  Report Type: Spontaneous
  Country: US (occurrence: US)
  Receive Date: 20150921
  Receipt Date: 20150924
  Transmission Date: 20151125
  Serious: Yes (Hospitalization, Other)
  Sender: FDA-Public Use
  Company Number: US-TEVA-593685USA

PATIENT
  Age: 74 Year
  Sex: Male

DRUGS (9)
  1. CARBIDOPA. [Concomitant]
     Active Substance: CARBIDOPA
     Indication: PARKINSON^S DISEASE
  2. CHOLESTYRAMINE. [Interacting]
     Active Substance: CHOLESTYRAMINE
     Indication: ABNORMAL FAECES
     Dosage: UNKNOWN
  3. FOSAMAX [Concomitant]
     Active Substance: ALENDRONATE SODIUM
     Indication: BONE ATROPHY
  4. NORTRIPTYLINE [Concomitant]
     Active Substance: NORTRIPTYLINE
     Indication: POLLAKIURIA
  5. SLOW RELEASE CARBIDOPA [Concomitant]
     Indication: PARKINSON^S DISEASE
  6. VITAMIN D [Concomitant]
     Active Substance: CHOLECALCIFEROL
     Indication: BONE ATROPHY
  7. CALCIUM [Concomitant]
     Active Substance: CALCIUM
     Indication: BONE ATROPHY
  8. MIDODRINE [Concomitant]
     Active Substance: MIDODRINE
     Indication: PARKINSON^S DISEASE
  9. AZILECT [Suspect]
     Active Substance: RASAGILINE MESYLATE
     Indication: PARKINSON^S DISEASE
     Route: 065

REACTIONS (11)
  - Blindness [Unknown]
  - Fall [Unknown]
  - Dyskinesia [Recovered/Resolved]
  - Abnormal dreams [Unknown]
  - Intestinal obstruction [Recovered/Resolved]
  - Abasia [Unknown]
  - Gait disturbance [Unknown]
  - Asthenia [Unknown]
  - Drug interaction [Unknown]
  - Mobility decreased [Unknown]
  - Mobility decreased [Unknown]

NARRATIVE: CASE EVENT DATE: 201501
